FAERS Safety Report 7106369-1 (Version None)
Quarter: 2010Q4

REPORT INFORMATION
  Report Type: 
  Country: None (occurrence: None)
  Receive Date: 20101116
  Receipt Date: 20100623
  Transmission Date: 20110411
  Serious: Yes (Other)
  Sender: FDA-Public Use
  Company Number: US-PFIZER INC-2010079197

PATIENT
  Sex: Male
  Weight: 81.6 kg

DRUGS (1)
  1. TOVIAZ [Suspect]
     Indication: BLADDER SPASM
     Dosage: 8 MG, DAILY
     Route: 048
     Dates: start: 20100622

REACTIONS (1)
  - URINARY RETENTION [None]
